FAERS Safety Report 7342874-0 (Version None)
Quarter: 2011Q1

REPORT INFORMATION
  Report Type: 
  Country: None (occurrence: None)
  Receive Date: 20110310
  Receipt Date: 20110203
  Transmission Date: 20110831
  Serious: No
  Sender: FDA-Public Use
  Company Number: BR-SANOFI-AVENTIS-2011SA008248

PATIENT
  Age: 36 Year
  Sex: Female

DRUGS (4)
  1. PREDNISONE TAB [Concomitant]
     Route: 064
  2. ARAVA [Suspect]
     Indication: DRUG EXPOSURE DURING PREGNANCY
     Route: 064
     Dates: start: 20110101
  3. ARAVA [Suspect]
     Indication: RHEUMATOID ARTHRITIS
     Route: 064
     Dates: start: 20110101
  4. HYDROXYCHLOROQUINE [Concomitant]
     Route: 064

REACTIONS (1)
  - DRUG EXPOSURE DURING PREGNANCY [None]
